FAERS Safety Report 4386373-7 (Version None)
Quarter: 2004Q2

REPORT INFORMATION
  Report Type: 
  Country: None (occurrence: None)
  Receive Date: 20040629
  Receipt Date: 20040301
  Transmission Date: 20050107
  Serious: Yes (Hospitalization)
  Sender: FDA-Public Use
  Company Number: FR-BRISTOL-MYERS SQUIBB COMPANY-12523023

PATIENT
  Age: 58 Year
  Sex: Female
  Weight: 53 kg

DRUGS (2)
  1. MEGACE [Suspect]
     Indication: BREAST CANCER
     Route: 048
     Dates: start: 20000101
  2. FEMARA [Suspect]
     Dosage: DOSAGE FORM = ONE TABLET
     Dates: start: 20000101

REACTIONS (1)
  - PYREXIA [None]
